FAERS Safety Report 8315254-9 (Version None)
Quarter: 2012Q2

REPORT INFORMATION
  Report Type: 
  Country: None (occurrence: None)
  Receive Date: 20120426
  Receipt Date: 20120423
  Transmission Date: 20120825
  Serious: Yes (Other)
  Sender: FDA-Public Use
  Company Number: PHHY2012PE020302

PATIENT
  Sex: Female

DRUGS (6)
  1. ASCORBIC ACID [Concomitant]
  2. MULTI-VITAMINS [Concomitant]
  3. TALENTUM [Concomitant]
  4. EXELON [Suspect]
     Indication: DEMENTIA ALZHEIMER'S TYPE
     Dosage: 4.6 MG/ 24HRS
     Route: 062
     Dates: start: 20100101
  5. THIAMINE HCL [Concomitant]
  6. CENTRUM [Concomitant]
     Dates: start: 20110101

REACTIONS (6)
  - APPLICATION SITE ERYTHEMA [None]
  - APPLICATION SITE PRURITUS [None]
  - CARDIAC ARREST [None]
  - APPLICATION SITE SWELLING [None]
  - INFLAMMATION [None]
  - HYPERSENSITIVITY [None]
